FAERS Safety Report 7703426-3 (Version None)
Quarter: 2011Q3

REPORT INFORMATION
  Report Type: 
  Country: None (occurrence: None)
  Receive Date: 20110823
  Receipt Date: 20110823
  Transmission Date: 20111222
  Serious: Yes (Disabling)
  Sender: FDA-Public Use
  Company Number: None

PATIENT
  Sex: Female
  Weight: 61.234 kg

DRUGS (1)
  1. PREDNISOLONE [Suspect]
     Indication: INFLAMMATION
     Dosage: 30MG
     Route: 048
     Dates: start: 20110821, end: 20110821

REACTIONS (3)
  - RASH [None]
  - DIZZINESS [None]
  - INSOMNIA [None]
